FAERS Safety Report 4464221-4 (Version None)
Quarter: 2004Q4

REPORT INFORMATION
  Report Type: 
  Country: None (occurrence: None)
  Receive Date: 20041001
  Receipt Date: 20040920
  Transmission Date: 20050328
  Serious: Yes (Hospitalization)
  Sender: FDA-Public Use
  Company Number: FR-GLAXOSMITHKLINE-B0345926A

PATIENT
  Sex: Female
  Weight: 3.3 kg

DRUGS (2)
  1. DEROXAT [Suspect]
     Dates: end: 20040804
  2. LEXOMIL [Suspect]
     Dates: end: 20040804

REACTIONS (8)
  - AGITATION [None]
  - DRUG EXPOSURE DURING PREGNANCY [None]
  - HIGH-PITCHED CRYING [None]
  - HYPERTONIA [None]
  - RESPIRATORY DISTRESS [None]
  - SOMNOLENCE NEONATAL [None]
  - TACHYPNOEA [None]
  - TREMOR [None]
